FAERS Safety Report 4398717-0 (Version None)
Quarter: 2004Q3

REPORT INFORMATION
  Report Type: 
  Country: None (occurrence: None)
  Receive Date: 20040715
  Receipt Date: 20040709
  Transmission Date: 20050211
  Serious: Yes (Other)
  Sender: FDA-Public Use
  Company Number: PHBS2004CH09273

PATIENT
  Age: 53 Year
  Sex: Male

DRUGS (7)
  1. CYCLOSPORINE [Suspect]
     Indication: RENAL TRANSPLANT
     Route: 065
  2. PREDNISOLONE [Concomitant]
  3. BISOPROLOL FUMARATE [Concomitant]
  4. PRAZOSIN HCL [Concomitant]
  5. CLONAZEPAM [Concomitant]
  6. CALCIUM CARBONATE [Concomitant]
  7. INSULIN [Concomitant]

REACTIONS (7)
  - ERYTHEMA [None]
  - PAIN [None]
  - PYREXIA [None]
  - RASH MACULO-PAPULAR [None]
  - SCLERODERMA [None]
  - SKIN FIBROSIS [None]
  - SKIN OEDEMA [None]
